FAERS Safety Report 8975013 (Version 2)
Quarter: 2012Q4

REPORT INFORMATION
  Report Type: Spontaneous
  Country: US (occurrence: None)
  Receive Date: 20121211
  Receipt Date: 20121221
  Transmission Date: 20130627
  Serious: Yes (Death, Hospitalization)
  Sender: FDA-Public Use
  Company Number: ENTC2012-0545

PATIENT
  Sex: Male

DRUGS (1)
  1. STALEVO (LEVODOPA, CARBIDOPA, ENTACAPONE) [Suspect]
     Indication: PARKINSON^S DISEASE

REACTIONS (2)
  - Fall [None]
  - Hip fracture [None]
